FAERS Safety Report 9991561 (Version 1)
Quarter: 2014Q1

REPORT INFORMATION
  Report Type: Spontaneous
  Country: US (occurrence: None)
  Receive Date: 20140123
  Receipt Date: 20140123
  Transmission Date: 20141002
  Serious: Yes (Hospitalization)
  Sender: FDA-Public Use
  Company Number: UTC0038960

PATIENT
  Age: 43 Year
  Sex: Female
  Weight: 91.36 kg

DRUGS (2)
  1. TYVASO (6 MICROGRAM, AEROSOL FOR INHALATION)(TREPROSTINIL SODIUM) [Suspect]
     Indication: COR PULMONALE CHRONIC
     Dosage: 18 TO 54 MCGS (4 IN 1 D),INHALATION
     Route: 055
     Dates: start: 20091208
  2. REVATIO (SILDENAFIL CITRATE)(UNKNOWN) [Concomitant]

REACTIONS (1)
  - Pneumonia [None]
